FAERS Safety Report 9148747 (Version 1)
Quarter: 2013Q1

REPORT INFORMATION
  Report Type: Spontaneous
  Country: CN (occurrence: CN)
  Receive Date: 20130308
  Receipt Date: 20130308
  Transmission Date: 20140127
  Serious: Yes (Other)
  Sender: FDA-Public Use
  Company Number: CN-JNJFOC-20130300846

PATIENT
  Age: 0 Year
  Sex: Female
  Weight: 9 kg

DRUGS (4)
  1. IBUPROFEN [Suspect]
     Indication: NASOPHARYNGITIS
     Dosage: 1.25ML, 3 TIMES A DAY
     Route: 048
     Dates: start: 20080308, end: 20080311
  2. IBUPROFEN [Suspect]
     Indication: PYREXIA
     Dosage: 1.25ML, 3 TIMES A DAY
     Route: 048
     Dates: start: 20080308, end: 20080311
  3. AZITHROMYCIN [Suspect]
     Indication: NASOPHARYNGITIS
     Dosage: 1.25ML, 3 TIMES A DAY
     Route: 065
     Dates: start: 20080308
  4. AZITHROMYCIN [Suspect]
     Indication: PYREXIA
     Dosage: 1.25ML, 3 TIMES A DAY
     Route: 065
     Dates: start: 20080308

REACTIONS (1)
  - Erythema multiforme [Recovered/Resolved]
